FAERS Safety Report 4318913-8 (Version None)
Quarter: 2004Q1

REPORT INFORMATION
  Report Type: 
  Country: None (occurrence: None)
  Receive Date: 20040315
  Receipt Date: 20040302
  Transmission Date: 20041129
  Serious: Yes (Other)
  Sender: FDA-Public Use
  Company Number: HQWYE503603MAR04

PATIENT
  Age: 19 Year
  Sex: Female

DRUGS (1)
  1. NORPLANT SYSTEM [Suspect]
     Indication: CONTRACEPTION
     Dosage: 6 CAPSULES, SUBCUTANEOUS
     Route: 058
     Dates: start: 19940101, end: 19960101

REACTIONS (6)
  - ABORTION SPONTANEOUS [None]
  - MOOD SWINGS [None]
  - MUSCLE CRAMP [None]
  - OVARIAN DISORDER [None]
  - PROGESTERONE DECREASED [None]
  - WEIGHT INCREASED [None]
